FAERS Safety Report 7346166-5 (Version None)
Quarter: 2011Q1

REPORT INFORMATION
  Report Type: 
  Country: None (occurrence: None)
  Receive Date: 20110311
  Receipt Date: 20110303
  Transmission Date: 20110831
  Serious: Yes (Other)
  Sender: FDA-Public Use
  Company Number: JP-ASTELLAS-2011JP001606

PATIENT
  Age: 39 Year
  Sex: Female

DRUGS (1)
  1. FUNGUARD [Suspect]
     Dosage: 300 MG, UNKNOWN/D
     Route: 041
     Dates: start: 20110221

REACTIONS (1)
  - GASTROINTESTINAL HAEMORRHAGE [None]
